FAERS Safety Report 6871243-2 (Version None)
Quarter: 2010Q3

REPORT INFORMATION
  Report Type: 
  Country: None (occurrence: None)
  Receive Date: 20100723
  Receipt Date: 20100712
  Transmission Date: 20110219
  Serious: Yes (Other)
  Sender: FDA-Public Use
  Company Number: US-PFIZER INC-2010054963

PATIENT
  Sex: Male

DRUGS (3)
  1. CHANTIX [Suspect]
     Indication: SMOKING CESSATION THERAPY
     Dosage: 1 MG, UNK
     Route: 048
     Dates: start: 20070304, end: 20071021
  2. PROMETHAZINE [Concomitant]
     Indication: NAUSEA
  3. PROMETHAZINE [Concomitant]
     Indication: VOMITING

REACTIONS (8)
  - ABNORMAL DREAMS [None]
  - ANGER [None]
  - ANXIETY [None]
  - HOMICIDAL IDEATION [None]
  - MAJOR DEPRESSION [None]
  - MOOD SWINGS [None]
  - OBSESSIVE-COMPULSIVE DISORDER [None]
  - SUICIDE ATTEMPT [None]
